FAERS Safety Report 18172614 (Version 2)
Quarter: 2020Q3

REPORT INFORMATION
  Report Type: Report from Study
  Country: CA (occurrence: CA)
  Receive Date: 20200820
  Receipt Date: 20200820
  Transmission Date: 20201103
  Serious: Yes (Other)
  Sender: FDA-Public Use
  Company Number: CA-ORION CORPORATION ORION PHARMA-20_00010417

PATIENT
  Age: 57 Year
  Sex: Female
  Weight: 63 kg

DRUGS (14)
  1. ACTEMRA [Suspect]
     Active Substance: TOCILIZUMAB
     Indication: RHEUMATOID ARTHRITIS
     Route: 042
  2. INDOCID [INDOMETACIN] [Concomitant]
     Active Substance: INDOMETHACIN
     Route: 065
  3. PREDNISONE. [Concomitant]
     Active Substance: PREDNISONE
     Route: 065
  4. TYLENOL [Concomitant]
     Active Substance: ACETAMINOPHEN
     Route: 065
  5. OXYCONTIN [Concomitant]
     Active Substance: OXYCODONE HYDROCHLORIDE
     Route: 065
  6. METHOTREXATE (TRADE NAME UNKNOWN) [Suspect]
     Active Substance: METHOTREXATE
     Indication: PRODUCT USED FOR UNKNOWN INDICATION
     Route: 065
  7. ACTEMRA [Suspect]
     Active Substance: TOCILIZUMAB
     Indication: PSORIATIC ARTHROPATHY
     Route: 042
  8. ENBREL [Concomitant]
     Active Substance: ETANERCEPT
     Route: 065
  9. ENDOCET [Concomitant]
     Active Substance: ACETAMINOPHEN\OXYCODONE HYDROCHLORIDE
     Route: 065
  10. ACTEMRA [Suspect]
     Active Substance: TOCILIZUMAB
     Route: 042
  11. RISEDRONATE SODIUM. [Concomitant]
     Active Substance: RISEDRONATE SODIUM
     Route: 065
  12. ACTEMRA [Suspect]
     Active Substance: TOCILIZUMAB
     Route: 042
  13. ALTACE [Concomitant]
     Active Substance: RAMIPRIL
     Route: 065
  14. AMLODIPINE BESILATE [Concomitant]
     Active Substance: AMLODIPINE BESYLATE
     Route: 065

REACTIONS (16)
  - Back pain [Recovered/Resolved]
  - Diarrhoea [Recovered/Resolved]
  - Erythema [Recovered/Resolved]
  - Heart rate decreased [Recovered/Resolved]
  - Nasopharyngitis [Recovered/Resolved]
  - Blood pressure diastolic increased [Recovered/Resolved]
  - Musculoskeletal pain [Recovered/Resolved]
  - Blood pressure systolic increased [Recovered/Resolved]
  - Adverse drug reaction [Recovered/Resolved]
  - Off label use [Recovered/Resolved]
  - Blood pressure increased [Recovered/Resolved]
  - Weight increased [Recovered/Resolved]
  - Hypotension [Recovered/Resolved]
  - Lower respiratory tract infection [Recovered/Resolved]
  - Musculoskeletal disorder [Recovered/Resolved]
  - Weight decreased [Recovered/Resolved]
